FAERS Safety Report 13072928 (Version 2)
Quarter: 2017Q1

REPORT INFORMATION
  Report Type: Spontaneous
  Country: US (occurrence: US)
  Receive Date: 20161229
  Receipt Date: 20170209
  Transmission Date: 20170428
  Serious: Yes (Hospitalization)
  Sender: FDA-Public Use
  Company Number: US-PFIZER INC-2016600931

PATIENT
  Age: 87 Year
  Sex: Male

DRUGS (1)
  1. SUTENT [Suspect]
     Active Substance: SUNITINIB MALATE
     Indication: RENAL CANCER
     Dosage: 50 MG, CYCLIC, (ONE TIME DAILY FOR 2 WEEKS ON FOLLOWED BY 1 WEEK OFF)
     Route: 048
     Dates: start: 20161104, end: 20170203

REACTIONS (2)
  - Hypertension [Not Recovered/Not Resolved]
  - Chest pain [Unknown]
